FAERS Safety Report 22804937 (Version 6)
Quarter: 2023Q4

REPORT INFORMATION
  Report Type: Spontaneous
  Country: CA (occurrence: CA)
  Receive Date: 20230809
  Receipt Date: 20231130
  Transmission Date: 20240110
  Serious: Yes (Other)
  Sender: FDA-Public Use
  Company Number: CA-PFIZER INC-PV202300133835

PATIENT
  Age: 60 Year
  Sex: Male
  Weight: 94.4 kg

DRUGS (5)
  1. ZIRABEV [Suspect]
     Active Substance: BEVACIZUMAB-BVZR
     Dosage: 472 MG
     Dates: start: 20230626
  2. ZIRABEV [Suspect]
     Active Substance: BEVACIZUMAB-BVZR
     Dosage: 5MG X 94 KG VA 10MG/KG
     Dates: start: 20230706
  3. ZIRABEV [Suspect]
     Active Substance: BEVACIZUMAB-BVZR
     Dosage: 5MG X 94 KG VA 10MG/KG)
     Dates: start: 20230803
  4. ZIRABEV [Suspect]
     Active Substance: BEVACIZUMAB-BVZR
     Dosage: UNK
     Dates: start: 20230817
  5. ZIRABEV [Suspect]
     Active Substance: BEVACIZUMAB-BVZR
     Dosage: UNK
     Dates: start: 20230817

REACTIONS (4)
  - Neoplasm [Unknown]
  - Pseudomonas infection [Unknown]
  - Wound [Unknown]
  - Fatigue [Unknown]
